FAERS Safety Report 16889066 (Version 1)
Quarter: 2019Q4

REPORT INFORMATION
  Report Type: Report from Study
  Country: GR (occurrence: GR)
  Receive Date: 20191007
  Receipt Date: 20191007
  Transmission Date: 20200122
  Serious: Yes (Other)
  Sender: FDA-Public Use
  Company Number: GR-ROCHE-2431032

PATIENT

DRUGS (5)
  1. TRASTUZUMAB. [Suspect]
     Active Substance: TRASTUZUMAB
     Route: 041
  2. DEXAMETHASONE. [Concomitant]
     Active Substance: DEXAMETHASONE
     Indication: PREMEDICATION
     Route: 042
  3. PACLITAXEL. [Suspect]
     Active Substance: PACLITAXEL
     Indication: BREAST CANCER
     Route: 042
  4. TRASTUZUMAB. [Suspect]
     Active Substance: TRASTUZUMAB
     Indication: BREAST CANCER
     Dosage: LOADING DOSE
     Route: 041
  5. GEMCITABINE. [Suspect]
     Active Substance: GEMCITABINE
     Indication: BREAST CANCER
     Route: 042

REACTIONS (12)
  - Anaemia [Unknown]
  - Pyrexia [Unknown]
  - Leukopenia [Unknown]
  - Alopecia [Unknown]
  - Hypersensitivity [Unknown]
  - Diarrhoea [Unknown]
  - Myalgia [Unknown]
  - Neutropenia [Unknown]
  - Thrombocytopenia [Unknown]
  - Arthralgia [Unknown]
  - Neuropathy peripheral [Unknown]
  - Stomatitis [Unknown]
